FAERS Safety Report 8966400 (Version 2)
Quarter: 2013Q1

REPORT INFORMATION
  Report Type: Spontaneous
  Country: US (occurrence: US)
  Receive Date: 20121217
  Receipt Date: 20130129
  Transmission Date: 20140127
  Serious: Yes (Hospitalization)
  Sender: FDA-Public Use
  Company Number: US-ELI_LILLY_AND_COMPANY-US201212001821

PATIENT
  Age: 45 Year
  Sex: Male

DRUGS (13)
  1. CYMBALTA [Suspect]
     Indication: DEPRESSION
     Dosage: 30 MG, UNKNOWN
     Dates: start: 2005
  2. CYMBALTA [Suspect]
     Dosage: 60 MG, QD
     Dates: end: 2010
  3. CYMBALTA [Suspect]
     Dosage: 60 MG, BID
     Dates: start: 2010
  4. AVONEX [Concomitant]
  5. MOTRIN [Concomitant]
  6. OMEPRAZOL [Concomitant]
  7. MIRAPEX [Concomitant]
  8. BACLOFEN [Concomitant]
  9. AMITRIPTYLIN [Concomitant]
  10. MULTIVITAMIN [Concomitant]
  11. CALCIUM +VIT D [Concomitant]
  12. VITAMIN E [Concomitant]
  13. VICODIN [Concomitant]

REACTIONS (1)
  - Depression [Unknown]
